FAERS Safety Report 5850070-9 (Version None)
Quarter: 2008Q3

REPORT INFORMATION
  Report Type: 
  Country: None (occurrence: None)
  Receive Date: 20080819
  Receipt Date: 20080808
  Transmission Date: 20090109
  Serious: Yes (Hospitalization, Other)
  Sender: FDA-Public Use
  Company Number: ZA-AVENTIS-200817573GDDC

PATIENT
  Sex: Female
  Weight: 36.5 kg

DRUGS (8)
  1. RIFAMPICIN [Suspect]
     Indication: PULMONARY TUBERCULOSIS
     Dates: start: 20080620
  2. ISONIAZID [Suspect]
     Indication: PULMONARY TUBERCULOSIS
     Dates: start: 20080620
  3. PYRAZINAMIDE [Suspect]
     Indication: PULMONARY TUBERCULOSIS
     Dates: start: 20080620
  4. ETHAMBUTOL HCL [Suspect]
     Indication: PULMONARY TUBERCULOSIS
     Dates: start: 20080620
  5. PLACEBO [Suspect]
     Indication: PULMONARY TUBERCULOSIS
     Dates: start: 20080620
  6. PANADOL                            /00020001/ [Concomitant]
     Route: 048
     Dates: start: 20080619
  7. VIT B COMPLEX [Concomitant]
     Dosage: DOSE: 2 TBL
     Route: 048
     Dates: start: 20080619
  8. FERROUS SULFATE TAB [Concomitant]
     Dosage: DOSE: 2 TBL
     Route: 048
     Dates: start: 20080620

REACTIONS (3)
  - DEEP VEIN THROMBOSIS [None]
  - OEDEMA PERIPHERAL [None]
  - PAIN IN EXTREMITY [None]
